FAERS Safety Report 5255680-8 (Version None)
Quarter: 2007Q1

REPORT INFORMATION
  Report Type: 
  Country: None (occurrence: None)
  Receive Date: 20070305
  Receipt Date: 20070221
  Transmission Date: 20070707
  Serious: Yes (Other)
  Sender: FDA-Public Use
  Company Number: US-PFIZER INC-2006144193

PATIENT
  Sex: Female
  Weight: 113.9 kg

DRUGS (6)
  1. CEREBYX [Suspect]
     Indication: CONVULSION
     Route: 042
     Dates: start: 20061120, end: 20061120
  2. ALBUTEROL SULFATE/IPRATROPIUM BROMIDE [Concomitant]
  3. REGULAR INSULIN [Concomitant]
  4. ADVAIR DISKUS 100/50 [Concomitant]
  5. LASIX [Concomitant]
  6. METHYLPREDNISOLONE ACETATE [Concomitant]

REACTIONS (7)
  - ARTHROPOD BITE [None]
  - COAGULOPATHY [None]
  - FORMICATION [None]
  - PRURITUS [None]
  - RED BLOOD CELL COUNT DECREASED [None]
  - RENAL FUNCTION TEST ABNORMAL [None]
  - WHITE BLOOD CELL COUNT INCREASED [None]
